FAERS Safety Report 19857442 (Version 1)
Quarter: 2021Q3

REPORT INFORMATION
  Report Type: Spontaneous
  Country: DE (occurrence: DE)
  Receive Date: 20210920
  Receipt Date: 20210920
  Transmission Date: 20211014
  Serious: Yes (Other)
  Sender: FDA-Public Use
  Company Number: DE-BRISTOL-MYERS SQUIBB COMPANY-BMS-2021-091942

PATIENT
  Sex: Male

DRUGS (4)
  1. RUXOLITINIB [Concomitant]
     Active Substance: RUXOLITINIB
     Indication: PRODUCT USED FOR UNKNOWN INDICATION
     Dosage: UNK
     Route: 065
  2. ACETYLSALICYLIC ACID [Concomitant]
     Active Substance: ASPIRIN
     Indication: PLATELET AGGREGATION INHIBITION
     Dosage: UNK
     Route: 065
     Dates: start: 201708
  3. CLOPIDOGREL [Concomitant]
     Active Substance: CLOPIDOGREL BISULFATE
     Indication: PLATELET AGGREGATION INHIBITION
     Dosage: UNK
     Route: 065
     Dates: start: 201708
  4. HYDROXYUREA. [Suspect]
     Active Substance: HYDROXYUREA
     Indication: CYTOREDUCTIVE SURGERY
     Dosage: UNK
     Route: 065
     Dates: start: 201801, end: 201803

REACTIONS (8)
  - Hypersensitivity [Unknown]
  - Drug intolerance [Unknown]
  - Infection [Unknown]
  - Angina pectoris [Unknown]
  - Pyrexia [Unknown]
  - Coronary artery stenosis [Unknown]
  - Hypertension [Unknown]
  - Pain in extremity [Unknown]

NARRATIVE: CASE EVENT DATE: 201803
